FAERS Safety Report 4598577-9 (Version None)
Quarter: 2005Q1

REPORT INFORMATION
  Report Type: 
  Country: None (occurrence: None)
  Receive Date: 20050223
  Receipt Date: 20050208
  Transmission Date: 20050727
  Serious: Yes (Hospitalization)
  Sender: FDA-Public Use
  Company Number: 2004-04019

PATIENT
  Age: 80 Year
  Sex: Male

DRUGS (3)
  1. IMMUCYST   (BCG - IT (CONNAUGHT)) [Suspect]
     Indication: BLADDER CANCER
     Dosage: 69.5 MG (81.0 MG, 6 IN 1 WK), B.IN , BLADDER
     Route: 043
     Dates: start: 20041014, end: 20041116
  2. LEVOFLOXACIN [Suspect]
     Indication: CYSTITIS
     Dosage: 3 TAB/DAY, PO
     Route: 048
     Dates: start: 20040818, end: 20041220
  3. ISONIAZID [Suspect]
     Indication: CYSTITIS
     Dosage: 300 MG/DAY, P.O
     Route: 048
     Dates: start: 20041014, end: 20041116

REACTIONS (6)
  - GRANULOCYTE COUNT DECREASED [None]
  - NEUTROPHIL PERCENTAGE DECREASED [None]
  - PYREXIA [None]
  - RASH [None]
  - VIRAL INFECTION [None]
  - WHITE BLOOD CELL COUNT DECREASED [None]
